FAERS Safety Report 7071080-2 (Version None)
Quarter: 2010Q4

REPORT INFORMATION
  Report Type: 
  Country: None (occurrence: None)
  Receive Date: 20101029
  Receipt Date: 20101025
  Transmission Date: 20110411
  Serious: No
  Sender: FDA-Public Use
  Company Number: US-PFIZER INC-2010136141

PATIENT

DRUGS (1)
  1. SYNAREL [Suspect]
     Indication: ENDOMETRIOSIS

REACTIONS (1)
  - HOT FLUSH [None]
